FAERS Safety Report 18687460 (Version 1)
Quarter: 2020Q4

REPORT INFORMATION
  Report Type: Spontaneous
  Country: US (occurrence: US)
  Receive Date: 20201231
  Receipt Date: 20201231
  Transmission Date: 20210114
  Serious: Yes (Other)
  Sender: FDA-Public Use
  Company Number: US-SA-2020SA375271

PATIENT

DRUGS (1)
  1. DUPIXENT [Suspect]
     Active Substance: DUPILUMAB

REACTIONS (14)
  - Weight decreased [Unknown]
  - Swelling [Unknown]
  - Renal failure [Unknown]
  - Skin exfoliation [Unknown]
  - Neoplasm skin [Unknown]
  - Ear discomfort [Unknown]
  - Gait disturbance [Unknown]
  - Near death experience [Unknown]
  - Inflammation [Unknown]
  - General physical health deterioration [Unknown]
  - Pruritus [Unknown]
  - Nasal obstruction [Unknown]
  - Unevaluable event [Unknown]
  - Nail growth abnormal [Unknown]
